FAERS Safety Report 7760291-6 (Version None)
Quarter: 2011Q3

REPORT INFORMATION
  Report Type: 
  Country: None (occurrence: None)
  Receive Date: 20110919
  Receipt Date: 20110913
  Transmission Date: 20111222
  Serious: Yes (Other)
  Sender: FDA-Public Use
  Company Number: US-PFIZER INC-2011217187

PATIENT

DRUGS (1)
  1. SUTENT [Suspect]

REACTIONS (3)
  - NEOPLASM MALIGNANT [None]
  - MYOCARDIAL INFARCTION [None]
  - DISEASE PROGRESSION [None]
